FAERS Safety Report 25860238 (Version 1)
Quarter: 2025Q3

REPORT INFORMATION
  Report Type: Spontaneous
  Country: US (occurrence: None)
  Receive Date: 20250927
  Receipt Date: 20250927
  Transmission Date: 20251021
  Serious: Yes (Other)
  Sender: FDA-CTU
  Company Number: None

PATIENT
  Age: 74 Year
  Sex: Female

DRUGS (1)
  1. STEM CELL, EXOSOME, OR GROWTH FACTOR DERIVED UNAPPROVED PRODUCTS [Suspect]
     Active Substance: STEM CELL, EXOSOME, OR GROWTH FACTOR DERIVED UNAPPROVED PRODUCTS

REACTIONS (6)
  - Stem cell transplant [None]
  - Product advertising issue [None]
  - Wrong technique in product usage process [None]
  - Drug monitoring procedure not performed [None]
  - Drug ineffective [None]
  - Victim of abuse [None]

NARRATIVE: CASE EVENT DATE: 20250528
